FAERS Safety Report 22950825 (Version 2)
Quarter: 2024Q1

REPORT INFORMATION
  Report Type: Spontaneous
  Country: US (occurrence: US)
  Receive Date: 20230916
  Receipt Date: 20240120
  Transmission Date: 20240410
  Serious: No
  Sender: FDA-Public Use
  Company Number: US-002147023-NVSC2023US101422

PATIENT
  Sex: Male
  Weight: 108.86 kg

DRUGS (6)
  1. ALCOHOL [Suspect]
     Active Substance: ALCOHOL
     Indication: Psoriasis
     Dosage: UNK
     Route: 065
  2. CLINDAMYCIN [Suspect]
     Active Substance: CLINDAMYCIN
     Indication: Psoriasis
     Dosage: 1 %
     Route: 061
  3. COSENTYX [Suspect]
     Active Substance: SECUKINUMAB
     Indication: Psoriasis
     Dosage: 150 MG/ML
     Route: 058
  4. ECONAZOLE [Suspect]
     Active Substance: ECONAZOLE
     Indication: Psoriasis
     Dosage: 1 %
     Route: 061
  5. HYDROCORTISONE [Suspect]
     Active Substance: HYDROCORTISONE
     Indication: Psoriasis
     Dosage: UNK
     Route: 065
  6. LOSARTAN [Suspect]
     Active Substance: LOSARTAN
     Indication: Psoriasis
     Dosage: 100 MG
     Route: 048

REACTIONS (15)
  - Nodule [Unknown]
  - Rash [Unknown]
  - Rash pruritic [Unknown]
  - Tinea cruris [Recovered/Resolved]
  - Folliculitis [Unknown]
  - Skin irritation [Unknown]
  - Rash erythematous [Unknown]
  - Psoriasis [Unknown]
  - Skin exfoliation [Unknown]
  - Pruritus [Not Recovered/Not Resolved]
  - Pain of skin [Unknown]
  - Skin plaque [Unknown]
  - Drug ineffective [Unknown]
  - Product use in unapproved indication [Unknown]
  - Product storage error [Unknown]
